FAERS Safety Report 20639259 (Version 5)
Quarter: 2022Q3

REPORT INFORMATION
  Report Type: Spontaneous
  Country: JP (occurrence: JP)
  Receive Date: 20220326
  Receipt Date: 20220920
  Transmission Date: 20221027
  Serious: Yes (Hospitalization, Other)
  Sender: FDA-Public Use
  Company Number: JP-AMGEN-JPNSP2022053018

PATIENT
  Age: 77 Year
  Sex: Male

DRUGS (4)
  1. EVENITY [Suspect]
     Active Substance: ROMOSOZUMAB-AQQG
     Indication: Osteoporosis
     Dosage: 210 MILLIGRAM, QMO
     Route: 058
     Dates: start: 202107
  2. ELCATONIN [Concomitant]
     Active Substance: ELCATONIN
     Indication: Pain
     Dosage: UNK
  3. ELCATONIN [Concomitant]
     Active Substance: ELCATONIN
     Indication: Osteoporosis
  4. BEOVA [Concomitant]
     Indication: Pollakiuria
     Dosage: 50 MILLIGRAM

REACTIONS (2)
  - Fall [Recovered/Resolved]
  - Spinal fracture [Recovered/Resolved]

NARRATIVE: CASE EVENT DATE: 20210901
